FAERS Safety Report 6273393-0 (Version None)
Quarter: 2009Q3

REPORT INFORMATION
  Report Type: 
  Country: None (occurrence: None)
  Receive Date: 20090715
  Receipt Date: 20090611
  Transmission Date: 20100115
  Serious: Yes (Hospitalization)
  Sender: FDA-Public Use
  Company Number: SPV1-2009-01432

PATIENT
  Age: 67 Year
  Sex: Male

DRUGS (2)
  1. FOSRENOL [Suspect]
     Indication: HYPERPHOSPHATAEMIA
     Dosage: 750 MG, ORAL
     Route: 048
     Dates: start: 20090515, end: 20090601
  2. REMITCH (REMITCH) [Suspect]
     Indication: PRURITUS
     Dates: start: 20090513, end: 20090601

REACTIONS (2)
  - EOSINOPHILIA [None]
  - RASH [None]
